FAERS Safety Report 4740566-5 (Version None)
Quarter: 2005Q3

REPORT INFORMATION
  Report Type: 
  Country: None (occurrence: None)
  Receive Date: 20050801
  Receipt Date: 20041008
  Transmission Date: 20060218
  Serious: No
  Sender: FDA-Public Use
  Company Number: 209233

PATIENT
  Age: 58 Year
  Sex: Male
  Weight: 88 kg

DRUGS (12)
  1. RITUXAN [Suspect]
     Indication: NON-HODGKIN'S LYMPHOMA
     Dosage: 790 MG, 1/WEEK, INTRAVENOUS
     Route: 042
     Dates: start: 20040907
  2. CEPHALOSPORIN NOS [Concomitant]
  3. ASCORBIC ACID [Concomitant]
  4. ROFECOXIB [Concomitant]
  5. CETIRIZINE HCL [Concomitant]
  6. FERROUS SULFATE TAB [Concomitant]
  7. OMEPRAZOLE [Concomitant]
  8. MIDODRINE (MIDODRINE HYDROCHLORIDE) [Concomitant]
  9. NITROFURANTOIN [Concomitant]
  10. SIMVASTATIN [Concomitant]
  11. LORTAB (ACETAMINOPHEN, HYDROCODONE BITARTRAE) [Concomitant]
  12. RADIATION THERAPY [Concomitant]

REACTIONS (1)
  - DIARRHOEA [None]
